FAERS Safety Report 20684422 (Version 1)
Quarter: 2022Q2

REPORT INFORMATION
  Report Type: Spontaneous
  Country: US (occurrence: US)
  Receive Date: 20220407
  Receipt Date: 20220407
  Transmission Date: 20220721
  Serious: No
  Sender: FDA-Public Use
  Company Number: US-PFIZER INC-202101227986

PATIENT
  Age: 39 Year
  Sex: Male
  Weight: 61.678 kg

DRUGS (2)
  1. INLYTA [Suspect]
     Active Substance: AXITINIB
     Indication: Renal cancer
     Dosage: 7 MG, 2X/DAY
     Route: 048
     Dates: start: 20200705
  2. TYLENOL [Concomitant]
     Active Substance: ACETAMINOPHEN
     Dosage: UNK

REACTIONS (5)
  - Abdominal discomfort [Unknown]
  - Arthralgia [Unknown]
  - Chills [Unknown]
  - Bone pain [Unknown]
  - Intentional dose omission [Unknown]
